FAERS Safety Report 14257912 (Version 2)
Quarter: 2018Q1

REPORT INFORMATION
  Report Type: Report from Study
  Country: None (occurrence: AR)
  Receive Date: 20171207
  Receipt Date: 20180301
  Transmission Date: 20180508
  Serious: Yes (Hospitalization, Other)
  Sender: FDA-Public Use
  Company Number: AR-ABBVIE-17K-007-2184391-00

PATIENT
  Age: 61 Year
  Sex: Female

DRUGS (1)
  1. HUMIRA [Suspect]
     Active Substance: ADALIMUMAB
     Indication: RHEUMATOID ARTHRITIS
     Route: 058
     Dates: start: 20161118

REACTIONS (2)
  - Chronic obstructive pulmonary disease [Recovering/Resolving]
  - Cardiopulmonary failure [Recovering/Resolving]

NARRATIVE: CASE EVENT DATE: 201711
